FAERS Safety Report 5218543-X (Version None)
Quarter: 2006Q4

REPORT INFORMATION
  Report Type: 
  Country: None (occurrence: None)
  Receive Date: 20061121
  Receipt Date: 20061013
  Transmission Date: 20070319
  Serious: No
  Sender: FDA-Public Use
  Company Number: TPA2006A01803

PATIENT
  Age: 5 Decade
  Sex: Female

DRUGS (1)
  1. ROZEREM [Suspect]
     Dosage: 8 MG, UNKNOWN, PER ORAL
     Route: 048

REACTIONS (1)
  - HEPATIC ENZYME INCREASED [None]
